FAERS Safety Report 14181114 (Version 1)
Quarter: 2017Q4

REPORT INFORMATION
  Report Type: Spontaneous
  Country: US (occurrence: US)
  Receive Date: 20171112
  Receipt Date: 20171112
  Transmission Date: 20180321
  Serious: Yes (Life-Threatening, Hospitalization, Other)
  Sender: FDA-Public Use
  Company Number: US-TEVA-757194USA

PATIENT
  Age: 28 Year
  Sex: Male

DRUGS (2)
  1. ISOPRENALINE [Suspect]
     Active Substance: ISOPROTERENOL HYDROCHLORIDE
     Route: 041
  2. LOPERAMIDE [Suspect]
     Active Substance: LOPERAMIDE
     Indication: DRUG ABUSE
     Dosage: LARGE AMOUNTS
     Route: 048

REACTIONS (5)
  - Torsade de pointes [Recovered/Resolved]
  - Drug abuse [Recovered/Resolved]
  - Tachyphylaxis [Recovered/Resolved]
  - Toxicity to various agents [Recovered/Resolved]
  - Intentional overdose [Recovered/Resolved]
